FAERS Safety Report 22067169 (Version 1)
Quarter: 2023Q1

REPORT INFORMATION
  Report Type: Report from Study
  Country: US (occurrence: US)
  Receive Date: 20230307
  Receipt Date: 20230307
  Transmission Date: 20230417
  Serious: Yes (Other)
  Sender: FDA-Public Use
  Company Number: US-BIOGEN-2023BI01191863

PATIENT
  Sex: Female

DRUGS (30)
  1. AVONEX [Suspect]
     Active Substance: INTERFERON BETA-1A
     Indication: Multiple sclerosis
     Route: 050
  2. AVONEX [Suspect]
     Active Substance: INTERFERON BETA-1A
  3. AVONEX [Suspect]
     Active Substance: INTERFERON BETA-1A
  4. AVONEX [Suspect]
     Active Substance: INTERFERON BETA-1A
  5. AVONEX [Suspect]
     Active Substance: INTERFERON BETA-1A
  6. AVONEX [Suspect]
     Active Substance: INTERFERON BETA-1A
  7. AVONEX [Suspect]
     Active Substance: INTERFERON BETA-1A
  8. AVONEX [Suspect]
     Active Substance: INTERFERON BETA-1A
  9. AVONEX [Suspect]
     Active Substance: INTERFERON BETA-1A
  10. AVONEX [Suspect]
     Active Substance: INTERFERON BETA-1A
  11. AVONEX [Suspect]
     Active Substance: INTERFERON BETA-1A
  12. AVONEX [Suspect]
     Active Substance: INTERFERON BETA-1A
  13. AVONEX [Suspect]
     Active Substance: INTERFERON BETA-1A
  14. GABAPENTIN [Concomitant]
     Active Substance: GABAPENTIN
     Indication: Product used for unknown indication
     Route: 050
  15. HYDROCODONE BITARTRATE ER [Concomitant]
     Indication: Product used for unknown indication
     Route: 050
  16. CYCLOBENZAPRINE HYDROCHLORIDE [Concomitant]
     Active Substance: CYCLOBENZAPRINE HYDROCHLORIDE
     Indication: Product used for unknown indication
     Route: 050
  17. SERTRALINE HYDROCHLORIDE [Concomitant]
     Active Substance: SERTRALINE HYDROCHLORIDE
     Indication: Product used for unknown indication
     Route: 050
  18. AMLODIPINE BESYLATE [Concomitant]
     Active Substance: AMLODIPINE BESYLATE
     Indication: Product used for unknown indication
     Route: 050
  19. LEVOTHROID [Concomitant]
     Active Substance: LEVOTHYROXINE SODIUM
     Indication: Product used for unknown indication
     Route: 050
  20. VITAMIN D3 [Concomitant]
     Active Substance: CHOLECALCIFEROL
     Indication: Product used for unknown indication
     Route: 050
  21. TORSEMIDE [Concomitant]
     Active Substance: TORSEMIDE
     Indication: Product used for unknown indication
     Route: 050
  22. CARVEDILOL [Concomitant]
     Active Substance: CARVEDILOL
     Indication: Product used for unknown indication
     Route: 050
  23. POTASSIUM CHLORIDE [Concomitant]
     Active Substance: POTASSIUM CHLORIDE
     Indication: Product used for unknown indication
     Route: 050
  24. SIMVASTATIN [Concomitant]
     Active Substance: SIMVASTATIN
     Indication: Product used for unknown indication
     Route: 050
  25. ALPRAZOLAM [Concomitant]
     Active Substance: ALPRAZOLAM
     Indication: Product used for unknown indication
     Route: 050
  26. MELATONIN EXTRA STRENGTH [Concomitant]
     Indication: Product used for unknown indication
     Route: 050
  27. VITAMIN B12 [Concomitant]
     Active Substance: CYANOCOBALAMIN
     Indication: Product used for unknown indication
     Route: 050
  28. ASPIRIN [Concomitant]
     Active Substance: ASPIRIN
     Indication: Product used for unknown indication
     Route: 050
  29. OMEPRAZOLE [Concomitant]
     Active Substance: OMEPRAZOLE
     Indication: Product used for unknown indication
     Route: 050
  30. ZYRTEC [Concomitant]
     Active Substance: CETIRIZINE HYDROCHLORIDE
     Indication: Product used for unknown indication
     Route: 050

REACTIONS (2)
  - Acute kidney injury [Unknown]
  - Cardiac failure [Unknown]
